FAERS Safety Report 8431903-9 (Version None)
Quarter: 2012Q2

REPORT INFORMATION
  Report Type: 
  Country: None (occurrence: None)
  Receive Date: 20120607
  Receipt Date: 20120607
  Transmission Date: 20120825
  Serious: Yes (Life-Threatening, Hospitalization)
  Sender: FDA-Public Use
  Company Number: None

PATIENT
  Sex: Male
  Weight: 78 kg

DRUGS (2)
  1. XGEVA [Suspect]
     Indication: PROSTATE CANCER METASTATIC
     Dosage: 120 MG, MONTHLY, SQ
     Dates: start: 20120515, end: 20120515
  2. XGEVA [Suspect]
     Indication: METASTASES TO BONE
     Dosage: 120 MG, MONTHLY, SQ
     Dates: start: 20120515, end: 20120515

REACTIONS (1)
  - BLOOD CALCIUM DECREASED [None]
